FAERS Safety Report 26170017 (Version 1)
Quarter: 2025Q4

REPORT INFORMATION
  Report Type: Report from Study
  Country: CA (occurrence: CA)
  Receive Date: 20251217
  Receipt Date: 20251217
  Transmission Date: 20260118
  Serious: Yes (Other)
  Sender: TEVA
  Company Number: CA-TEVA-VS-3401712

PATIENT
  Age: 57 Year
  Sex: Female

DRUGS (8)
  1. AJOVY [Suspect]
     Active Substance: FREMANEZUMAB-VFRM
     Indication: Migraine prophylaxis
     Route: 058
     Dates: start: 20251201, end: 20251201
  2. PREGABALIN [Concomitant]
     Active Substance: PREGABALIN
     Indication: Product use in unapproved indication
     Dosage: ACTIVE
     Route: 065
  3. TOPIRAMATE [Concomitant]
     Active Substance: TOPIRAMATE
     Indication: Product use in unapproved indication
     Dosage: ACTIVE
     Route: 065
  4. AMITRIPTYLINE [Concomitant]
     Active Substance: AMITRIPTYLINE
     Indication: Product use in unapproved indication
     Dosage: DISCONTINUED
     Route: 065
  5. VENLAFAXINE [Concomitant]
     Active Substance: VENLAFAXINE HYDROCHLORIDE
     Indication: Product use in unapproved indication
     Dosage: ACTIVE
     Route: 065
  6. QULIPTA [Concomitant]
     Active Substance: ATOGEPANT
     Indication: Product use in unapproved indication
     Dosage: ACTIVE
     Route: 065
  7. AIMOVIG [Concomitant]
     Active Substance: ERENUMAB-AOOE
     Indication: Product use in unapproved indication
     Dosage: DISCONTINUED
     Route: 065
  8. EMGALITY [Concomitant]
     Active Substance: GALCANEZUMAB-GNLM
     Indication: Product use in unapproved indication
     Dosage: DISCONTINUED
     Route: 065

REACTIONS (1)
  - Cerebrovascular accident [Unknown]

NARRATIVE: CASE EVENT DATE: 20251201
